FAERS Safety Report 11639861 (Version 1)
Quarter: 2015Q4

REPORT INFORMATION
  Report Type: Spontaneous
  Country: US (occurrence: None)
  Receive Date: 20151016
  Receipt Date: 20151016
  Transmission Date: 20160304
  Serious: Yes (Hospitalization)
  Sender: FDA-Public Use
  Company Number: None

PATIENT
  Age: 63 Year
  Sex: Male
  Weight: 95.9 kg

DRUGS (1)
  1. ERBITUX [Suspect]
     Active Substance: CETUXIMAB
     Dates: end: 20150928

REACTIONS (6)
  - Cough [None]
  - Vomiting [None]
  - Hypophagia [None]
  - Fatigue [None]
  - Dehydration [None]
  - Bronchospasm [None]

NARRATIVE: CASE EVENT DATE: 20151002
